FAERS Safety Report 21923659 (Version 1)
Quarter: 2023Q1

REPORT INFORMATION
  Report Type: Spontaneous
  Country: US (occurrence: US)
  Receive Date: 20230130
  Receipt Date: 20230130
  Transmission Date: 20230417
  Serious: No
  Sender: FDA-Public Use
  Company Number: US-SA-SAC20230124001384

PATIENT
  Age: 14 Year
  Sex: Female
  Weight: 81.2 kg

DRUGS (1)
  1. FABRAZYME [Suspect]
     Active Substance: AGALSIDASE BETA
     Indication: Fabry^s disease
     Dosage: 1 MG/KG, QOW
     Route: 042
     Dates: start: 20201028

REACTIONS (1)
  - Weight increased [Unknown]
